FAERS Safety Report 18502801 (Version 2)
Quarter: 2021Q3

REPORT INFORMATION
  Report Type: Spontaneous
  Country: US (occurrence: US)
  Receive Date: 20201113
  Receipt Date: 20210923
  Transmission Date: 20211014
  Serious: Yes (Other)
  Sender: FDA-Public Use
  Company Number: US-ASTRAZENECA-2020SF47556

PATIENT
  Sex: Male
  Weight: 131.5 kg

DRUGS (7)
  1. PRILOSEC [Suspect]
     Active Substance: OMEPRAZOLE MAGNESIUM
     Indication: GASTROOESOPHAGEAL REFLUX DISEASE
     Route: 048
     Dates: start: 198901, end: 201811
  2. BUDESONIDE/FORMOTEROL [Concomitant]
     Active Substance: BUDESONIDE\FORMOTEROL
  3. TAMSULOSIN [Concomitant]
     Active Substance: TAMSULOSIN
     Indication: PROSTATE CANCER
  4. PRILOSEC [Suspect]
     Active Substance: OMEPRAZOLE MAGNESIUM
     Indication: GASTROOESOPHAGEAL REFLUX DISEASE
     Dosage: 20.0MG UNKNOWN
     Route: 048
     Dates: start: 1989, end: 2018
  5. ACTEMINOPHEN [Concomitant]
     Indication: ANALGESIC THERAPY
  6. METOPROLOL. [Concomitant]
     Active Substance: METOPROLOL
     Indication: BLOOD PRESSURE ABNORMAL
  7. FAMOTIDINE. [Concomitant]
     Active Substance: FAMOTIDINE

REACTIONS (3)
  - Chronic kidney disease [Unknown]
  - Gastric cancer [Not Recovered/Not Resolved]
  - Renal injury [Unknown]
